FAERS Safety Report 16402901 (Version 1)
Quarter: 2019Q2

REPORT INFORMATION
  Report Type: Spontaneous
  Country: BR (occurrence: BR)
  Receive Date: 20190607
  Receipt Date: 20190607
  Transmission Date: 20190711
  Serious: Yes (Other)
  Sender: FDA-Public Use
  Company Number: BR-SA-2019SA139482

PATIENT
  Sex: Female
  Weight: 100 kg

DRUGS (26)
  1. VICTOZA [Concomitant]
     Active Substance: LIRAGLUTIDE
     Indication: TYPE 2 DIABETES MELLITUS
     Dosage: 1,2 IU, QD
     Route: 058
  2. RIVOTRIL [Concomitant]
     Active Substance: CLONAZEPAM
     Indication: DEPRESSION
     Dosage: UNK UNK, QD
     Route: 048
  3. CYCLOBENZAPRINE HYDROCHLORIDE. [Concomitant]
     Active Substance: CYCLOBENZAPRINE HYDROCHLORIDE
     Indication: OSTEOARTHRITIS
     Dosage: UNK UNK, QD
     Route: 048
  4. FLUOXETINE [Concomitant]
     Active Substance: FLUOXETINE HYDROCHLORIDE
     Indication: DEPRESSION
     Dosage: UNK, QD
     Route: 048
  5. RIVOTRIL [Concomitant]
     Active Substance: CLONAZEPAM
     Indication: ANXIETY
  6. AMLODIPINE [Concomitant]
     Active Substance: AMLODIPINE BESYLATE
     Indication: HYPERTENSION
     Dosage: UNK UNK, QD
     Route: 048
  7. METOTREXATO [METHOTREXATE] [Concomitant]
     Active Substance: METHOTREXATE
     Indication: OSTEOARTHRITIS
     Dosage: UNK UNK, QW
     Route: 048
  8. NOVORAPID [Concomitant]
     Active Substance: INSULIN ASPART
     Indication: TYPE 2 DIABETES MELLITUS
     Dosage: 18 IU FOR CORRECTION 6 OR 7 TIMES PER DAY ACCORDING TO THE GLYCEMIA
     Route: 058
  9. FENOFIBRATE. [Concomitant]
     Active Substance: FENOFIBRATE
     Indication: BLOOD CHOLESTEROL
     Dosage: UNK UNK, QD
     Route: 048
  10. FOLIC ACID. [Concomitant]
     Active Substance: FOLIC ACID
     Indication: OSTEOARTHRITIS
     Dosage: UNK UNK, QW
     Route: 048
  11. AEROLIN [Concomitant]
     Active Substance: ALBUTEROL
     Indication: ASTHMA
     Dosage: UNK UNK, QD
     Route: 065
  12. ORLISTAT. [Concomitant]
     Active Substance: ORLISTAT
     Indication: TYPE 2 DIABETES MELLITUS
     Dosage: UNK UNK, TID
     Route: 048
  13. FORFIG [Concomitant]
     Indication: HEPATIC STEATOSIS
     Dosage: UNK UNK, BID
     Route: 048
  14. ADDERA D3 [Concomitant]
     Active Substance: CHOLECALCIFEROL
     Dosage: UNK UNK, QW
     Route: 048
  15. ALENIA [BUDESONIDE;FORMOTEROL FUMARATE] [Concomitant]
     Indication: ASTHMA
     Dosage: UNK
     Route: 065
  16. HYDROCHLOROTHIAZIDE. [Concomitant]
     Active Substance: HYDROCHLOROTHIAZIDE
     Indication: HYPERTENSION
     Dosage: UNK UNK, QD
     Route: 048
  17. GLIFAGE [Concomitant]
     Active Substance: METFORMIN HYDROCHLORIDE
     Indication: TYPE 2 DIABETES MELLITUS
     Dosage: UNK UNK, TID
     Route: 048
  18. ROSUVASTATIN CALCIUM. [Concomitant]
     Active Substance: ROSUVASTATIN CALCIUM
     Indication: BLOOD CHOLESTEROL
     Dosage: UNK UNK, QD
     Route: 048
  19. GABAPENTIN ^PCD^ [Concomitant]
     Active Substance: GABAPENTIN
     Indication: POLYNEUROPATHY
     Dosage: 4 DF, QD
     Route: 048
  20. LOSARTAN. [Concomitant]
     Active Substance: LOSARTAN
     Indication: HYPERTENSION
     Dosage: UNK UNK, BID
     Route: 048
  21. LANTUS [Suspect]
     Active Substance: INSULIN GLARGINE
     Indication: TYPE 2 DIABETES MELLITUS
     Dosage: 60 IU, BID
     Route: 058
     Dates: start: 2017
  22. ORLISTAT. [Concomitant]
     Active Substance: ORLISTAT
     Indication: BLOOD TRIGLYCERIDES
  23. FENOFIBRATE. [Concomitant]
     Active Substance: FENOFIBRATE
     Indication: BLOOD TRIGLYCERIDES INCREASED
  24. PIOGLITAZONE HYDROCHLORIDE AND METFORMIN HYDROCHLORIDE [Concomitant]
     Active Substance: METFORMIN HYDROCHLORIDE\PIOGLITAZONE HYDROCHLORIDE
     Indication: TYPE 2 DIABETES MELLITUS
     Dosage: UNK, QD
     Route: 048
  25. OMEGA 3 WOMEN [Concomitant]
     Indication: BLOOD CHOLESTEROL
     Dosage: UNK UNK, BID
     Route: 048
  26. ORLISTAT. [Concomitant]
     Active Substance: ORLISTAT
     Indication: BLOOD CHOLESTEROL

REACTIONS (3)
  - Pancreatitis [Unknown]
  - Diabetes mellitus inadequate control [Not Recovered/Not Resolved]
  - Off label use [Unknown]
